FAERS Safety Report 21232711 (Version 3)
Quarter: 2022Q3

REPORT INFORMATION
  Report Type: Spontaneous
  Country: FR (occurrence: FR)
  Receive Date: 20220819
  Receipt Date: 20220830
  Transmission Date: 20221027
  Serious: Yes (Hospitalization)
  Sender: FDA-Public Use
  Company Number: None

PATIENT
  Age: 54 Year
  Sex: Female
  Weight: 85 kg

DRUGS (6)
  1. ENCORAFENIB [Suspect]
     Active Substance: ENCORAFENIB
     Indication: Metastasis
     Dosage: 450 MG/DAY
     Route: 048
     Dates: start: 20210219
  2. ENCORAFENIB [Suspect]
     Active Substance: ENCORAFENIB
     Dosage: 450 MG/DAY
     Route: 048
     Dates: start: 20211117, end: 20220214
  3. BINIMETINIB [Suspect]
     Active Substance: BINIMETINIB
     Indication: Metastasis
     Dosage: 45MG 2 TIMES/DAY (ONCE EVERY 12 HOURS)
     Route: 048
     Dates: start: 20211117, end: 20220214
  4. BINIMETINIB [Suspect]
     Active Substance: BINIMETINIB
     Dosage: 30MG 2 TIMES/DAY (ONCE EVERY 12 HOURS)
     Route: 048
     Dates: start: 20220219
  5. CALCIUM CARBONATE\CHOLECALCIFEROL [Concomitant]
     Active Substance: CALCIUM CARBONATE\CHOLECALCIFEROL
     Dosage: UNK
     Route: 065
  6. ESCITALOPRAM [Concomitant]
     Active Substance: ESCITALOPRAM OXALATE
     Dosage: UNK
     Route: 065

REACTIONS (2)
  - Duodenal ulcer haemorrhage [Recovered/Resolved]
  - Gingival bleeding [Recovered/Resolved]

NARRATIVE: CASE EVENT DATE: 20220214
